FAERS Safety Report 9140279 (Version 2)
Quarter: 2013Q2

REPORT INFORMATION
  Report Type: Spontaneous
  Country: US (occurrence: US)
  Receive Date: 20130305
  Receipt Date: 20130418
  Transmission Date: 20140414
  Serious: Yes (Other)
  Sender: FDA-Public Use
  Company Number: US-MERCK-1302USA013580

PATIENT
  Age: 34 Year
  Sex: Female

DRUGS (1)
  1. SAPHRIS [Suspect]
     Dosage: UNK
     Route: 060
     Dates: start: 20130218

REACTIONS (4)
  - Hypersensitivity [Recovering/Resolving]
  - Dyspnoea [Recovering/Resolving]
  - Rash [Recovering/Resolving]
  - Dysphagia [Recovering/Resolving]
